FAERS Safety Report 20138650 (Version 1)
Quarter: 2021Q4

REPORT INFORMATION
  Report Type: Other
  Country: None (occurrence: ES)
  Receive Date: 20211202
  Receipt Date: 20211202
  Transmission Date: 20220303
  Serious: Yes (Hospitalization, Other)
  Sender: FDA-Public Use
  Company Number: ES-Innogenix, LLC-2122583

PATIENT
  Age: 69 Year
  Sex: Male

DRUGS (3)
  1. METRONIDAZOLE [Suspect]
     Active Substance: METRONIDAZOLE
     Indication: Antibiotic therapy
     Route: 042
  2. FLUCONAZOLE [Interacting]
     Active Substance: FLUCONAZOLE
     Route: 042
  3. CEFTRIAXONE [Concomitant]
     Active Substance: CEFTRIAXONE
     Route: 042

REACTIONS (2)
  - Cerebellar syndrome [Recovered/Resolved]
  - Drug interaction [Recovered/Resolved]
